FAERS Safety Report 9190614 (Version 1)
Quarter: 2013Q1

REPORT INFORMATION
  Report Type: Report from Study
  Country: US (occurrence: US)
  Receive Date: 20130326
  Receipt Date: 20130326
  Transmission Date: 20140127
  Serious: Yes (Other)
  Sender: FDA-Public Use
  Company Number: US-TEVA-393405USA

PATIENT
  Age: 14 Year
  Sex: Female
  Weight: 51.3 kg

DRUGS (7)
  1. TRISENOX [Suspect]
     Indication: ACUTE PROMYELOCYTIC LEUKAEMIA
     Dates: start: 20120906, end: 20130106
  2. CYTARABINE [Suspect]
     Indication: ACUTE PROMYELOCYTIC LEUKAEMIA
     Dates: start: 20120906, end: 20130114
  3. MITOXANTRONE [Suspect]
     Indication: ACUTE PROMYELOCYTIC LEUKAEMIA
     Dates: start: 20120906, end: 20130117
  4. ATRA [Suspect]
     Indication: ACUTE PROMYELOCYTIC LEUKAEMIA
     Dates: start: 20120906, end: 20130126
  5. BACTRIM [Concomitant]
  6. EMLA [Concomitant]
  7. NOXAFIL [Concomitant]

REACTIONS (1)
  - Second primary malignancy [Recovered/Resolved]
